FAERS Safety Report 7806087-8 (Version None)
Quarter: 2011Q4

REPORT INFORMATION
  Report Type: 
  Country: None (occurrence: None)
  Receive Date: 20111011
  Receipt Date: 20111006
  Transmission Date: 20120403
  Serious: Yes (Other)
  Sender: FDA-Public Use
  Company Number: US-PFIZER INC-2011239396

PATIENT
  Sex: Male
  Weight: 74.8 kg

DRUGS (2)
  1. LIPITOR [Concomitant]
     Indication: BLOOD CHOLESTEROL INCREASED
     Dosage: UNK
  2. LYRICA [Suspect]
     Indication: NEURALGIA
     Dosage: 75MG IN THE MORNING AND 50MG IN THE EVENING
     Route: 048
     Dates: start: 20110601

REACTIONS (1)
  - DEPRESSION [None]
